FAERS Safety Report 7854225-3 (Version None)
Quarter: 2011Q4

REPORT INFORMATION
  Report Type: 
  Country: None (occurrence: None)
  Receive Date: 20111026
  Receipt Date: 20111019
  Transmission Date: 20120403
  Serious: Yes (Other)
  Sender: FDA-Public Use
  Company Number: CH-BAXTER-2011BH033460

PATIENT
  Age: 34 Year
  Sex: Female

DRUGS (9)
  1. CYCLOPHOSPHAMIDE [Suspect]
     Indication: BREAST CANCER
     Route: 065
     Dates: start: 20110809, end: 20110809
  2. CYCLOPHOSPHAMIDE [Suspect]
     Route: 065
     Dates: start: 20110718, end: 20110718
  3. EPIRUBICIN HYDROCHLORIDE [Suspect]
     Route: 065
     Dates: start: 20110718, end: 20110718
  4. EMEND [Suspect]
     Indication: BREAST CANCER
     Route: 048
     Dates: start: 20110718, end: 20110720
  5. ALOXI [Suspect]
     Route: 065
     Dates: start: 20110718, end: 20110718
  6. FLUOROURACIL [Suspect]
     Indication: BREAST CANCER
     Route: 065
     Dates: start: 20110809, end: 20110809
  7. FLUOROURACIL [Suspect]
     Route: 065
     Dates: start: 20110718, end: 20110718
  8. EPIRUBICIN HYDROCHLORIDE [Suspect]
     Indication: BREAST CANCER
     Route: 065
     Dates: start: 20110809, end: 20110809
  9. ALOXI [Suspect]
     Indication: BREAST CANCER
     Route: 065
     Dates: start: 20110809, end: 20110809

REACTIONS (1)
  - MATERNAL EXPOSURE DURING PREGNANCY [None]
